FAERS Safety Report 16870019 (Version 1)
Quarter: 2019Q3

REPORT INFORMATION
  Report Type: Spontaneous
  Country: PT (occurrence: PT)
  Receive Date: 20190930
  Receipt Date: 20190930
  Transmission Date: 20191005
  Serious: Yes (Death, Hospitalization)
  Sender: FDA-Public Use
  Company Number: PT-BAYER-2019-174216

PATIENT
  Age: 54 Year
  Sex: Female

DRUGS (1)
  1. SORAFENIB (RAF KINASE INHIBITOR) [Suspect]
     Active Substance: SORAFENIB
     Indication: MIXED HEPATOCELLULAR CHOLANGIOCARCINOMA
     Dosage: 200 MG, BID

REACTIONS (4)
  - Delirium [None]
  - Lethargy [None]
  - Hypokinesia [None]
  - Myocardial infarction [Fatal]
